FAERS Safety Report 7817059-1 (Version None)
Quarter: 2011Q4

REPORT INFORMATION
  Report Type: 
  Country: None (occurrence: None)
  Receive Date: 20111017
  Receipt Date: 20111005
  Transmission Date: 20120403
  Serious: Yes (Hospitalization, Other)
  Sender: FDA-Public Use
  Company Number: PHFR2011GB04439

PATIENT
  Sex: Female

DRUGS (2)
  1. KWELLS [Concomitant]
     Route: 065
  2. CLOZARIL [Suspect]
     Indication: SCHIZOPHRENIA
     Dosage: 100 MG AM + 300 MG PM
     Route: 048
     Dates: start: 20110627

REACTIONS (11)
  - CHOLELITHIASIS [None]
  - SALIVARY HYPERSECRETION [None]
  - HALLUCINATION, VISUAL [None]
  - MALAISE [None]
  - TYPE 1 DIABETES MELLITUS [None]
  - HALLUCINATION, AUDITORY [None]
  - HEART RATE INCREASED [None]
  - BLOOD GLUCOSE FLUCTUATION [None]
  - CONSTIPATION [None]
  - HYPERTENSION [None]
  - SEDATION [None]
